FAERS Safety Report 12943313 (Version 1)
Quarter: 2016Q4

REPORT INFORMATION
  Report Type: Spontaneous
  Country: US (occurrence: US)
  Receive Date: 20161115
  Receipt Date: 20161115
  Transmission Date: 20170207
  Serious: No
  Sender: FDA-Public Use
  Company Number: US-NOVOPROD-486193

PATIENT
  Sex: Female

DRUGS (1)
  1. VAGIFEM LD [Suspect]
     Active Substance: ESTRADIOL
     Indication: VULVOVAGINAL DRYNESS
     Route: 067

REACTIONS (3)
  - Product quality issue [Recovered/Resolved]
  - Haemorrhage [Recovered/Resolved]
  - Product package associated injury [Recovered/Resolved]

NARRATIVE: CASE EVENT DATE: 20160307
